FAERS Safety Report 13383675 (Version 3)
Quarter: 2017Q2

REPORT INFORMATION
  Report Type: Spontaneous
  Country: IT (occurrence: IT)
  Receive Date: 20170329
  Receipt Date: 20170530
  Transmission Date: 20170830
  Serious: Yes (Hospitalization)
  Sender: FDA-Public Use
  Company Number: PHHY2017IT043381

PATIENT
  Age: 18 Year
  Sex: Female

DRUGS (4)
  1. QUETIAPINE. [Suspect]
     Active Substance: QUETIAPINE
     Indication: DRUG USE DISORDER
     Route: 048
  2. FLUNOX [Suspect]
     Active Substance: FLURAZEPAM HYDROCHLORIDE
     Indication: DRUG USE DISORDER
     Route: 048
  3. TAVOR (LORAZEPAM) [Suspect]
     Active Substance: LORAZEPAM
     Indication: DRUG USE DISORDER
     Route: 048
  4. FLUOXETINE [Suspect]
     Active Substance: FLUOXETINE HYDROCHLORIDE
     Indication: DRUG USE DISORDER
     Route: 048

REACTIONS (6)
  - Mydriasis [Unknown]
  - Vomiting [Unknown]
  - Drug use disorder [Unknown]
  - Intentional self-injury [Unknown]
  - Bradyphrenia [Unknown]
  - Movement disorder [Unknown]

NARRATIVE: CASE EVENT DATE: 20161202
